FAERS Safety Report 6009141-9 (Version None)
Quarter: 2008Q4

REPORT INFORMATION
  Report Type: 
  Country: None (occurrence: None)
  Receive Date: 20081216
  Receipt Date: 20081203
  Transmission Date: 20090506
  Serious: Yes (Other)
  Sender: FDA-Public Use
  Company Number: PAR_02456_2008

PATIENT
  Sex: Male
  Weight: 145 kg

DRUGS (5)
  1. DIPHENOXYLATE HYDROCHLORIDE AND ATROPINE SULFATE [Suspect]
     Indication: GASTROINTESTINAL HYPERMOTILITY
     Dosage: DOSE VARIES (NO MORE THAN 4 TABLETS DAILY) 2.5 MG AND 0.025 MG ORAL)
     Route: 048
     Dates: start: 19900101
  2. ADVAIR DISKUS 250/50 [Concomitant]
  3. PRILOSEC [Concomitant]
  4. LOMOTIL [Concomitant]
  5. VITAMINS NOS [Concomitant]

REACTIONS (4)
  - ASTHMA [None]
  - CONDITION AGGRAVATED [None]
  - DEHYDRATION [None]
  - VISION BLURRED [None]
